FAERS Safety Report 24593471 (Version 1)
Quarter: 2024Q4

REPORT INFORMATION
  Report Type: Spontaneous
  Country: GB (occurrence: GB)
  Receive Date: 20241108
  Receipt Date: 20241108
  Transmission Date: 20250115
  Serious: Yes (Disabling, Other)
  Sender: JOHNSON AND JOHNSON
  Company Number: None

PATIENT
  Age: 71 Year
  Weight: 57 kg

DRUGS (2)
  1. ERLEADA [Suspect]
     Active Substance: APALUTAMIDE
     Indication: Prostate cancer
     Dosage: 4 TABLETS PER DAY
     Route: 065
     Dates: start: 20230701, end: 20240101
  2. TRIPTORELIN [Concomitant]
     Active Substance: TRIPTORELIN
     Indication: Prostate cancer
     Dates: start: 20230501

REACTIONS (1)
  - Aortic stenosis [Not Recovered/Not Resolved]

NARRATIVE: CASE EVENT DATE: 20240101
